FAERS Safety Report 16494298 (Version 1)
Quarter: 2019Q2

REPORT INFORMATION
  Report Type: Other
  Country: GB (occurrence: GB)
  Receive Date: 20190628
  Receipt Date: 20190628
  Transmission Date: 20190711
  Serious: Yes (Hospitalization, Other)
  Sender: FDA-Public Use
  Company Number: GB-GLENMARK PHARMACEUTICALS-2019GMK041897

PATIENT

DRUGS (2)
  1. NEBIVOLOL. [Suspect]
     Active Substance: NEBIVOLOL
     Indication: AORTIC STENOSIS
     Dosage: 5 MG, OD
     Route: 048
     Dates: start: 20190415, end: 201905
  2. ATORVASTATIN [Concomitant]
     Active Substance: ATORVASTATIN
     Indication: PRODUCT USED FOR UNKNOWN INDICATION
     Dosage: UNK
     Route: 065

REACTIONS (2)
  - Delirium [Recovering/Resolving]
  - Confusional state [Recovering/Resolving]
